FAERS Safety Report 21185258 (Version 1)
Quarter: 2022Q3

REPORT INFORMATION
  Report Type: Spontaneous
  Country: ES (occurrence: ES)
  Receive Date: 20220808
  Receipt Date: 20220808
  Transmission Date: 20221026
  Serious: Yes (Other)
  Sender: FDA-Public Use
  Company Number: ES-KOREA IPSEN Pharma-2022-22236

PATIENT
  Age: 43 Year
  Sex: Female

DRUGS (1)
  1. LANREOTIDE ACETATE [Suspect]
     Active Substance: LANREOTIDE ACETATE
     Indication: Acromegaly
     Route: 065
     Dates: start: 2021

REACTIONS (4)
  - Disease progression [Unknown]
  - Faeces soft [Recovered/Resolved]
  - Diverticulum [Unknown]
  - Goitre [Unknown]

NARRATIVE: CASE EVENT DATE: 20210101
